FAERS Safety Report 6685715-7 (Version None)
Quarter: 2010Q2

REPORT INFORMATION
  Report Type: 
  Country: None (occurrence: None)
  Receive Date: 20100419
  Receipt Date: 20100409
  Transmission Date: 20101027
  Serious: No
  Sender: FDA-Public Use
  Company Number: 2009BI013542

PATIENT
  Age: 50 Year
  Sex: Female

DRUGS (2)
  1. TYSABRI [Suspect]
     Indication: MULTIPLE SCLEROSIS
     Route: 042
     Dates: start: 20070727, end: 20080326
  2. TYSABRI [Suspect]
     Route: 042
     Dates: start: 20081210

REACTIONS (7)
  - ABASIA [None]
  - CONTUSION [None]
  - MULTIPLE SCLEROSIS [None]
  - MUSCLE SPASMS [None]
  - MUSCLE STRAIN [None]
  - MUSCLE TIGHTNESS [None]
  - WEIGHT BEARING DIFFICULTY [None]
